FAERS Safety Report 21122964 (Version 3)
Quarter: 2022Q4

REPORT INFORMATION
  Report Type: Spontaneous
  Country: US (occurrence: US)
  Receive Date: 20220724
  Receipt Date: 20221026
  Transmission Date: 20230113
  Serious: No
  Sender: FDA-Public Use
  Company Number: US-JNJFOC-20220740481

PATIENT
  Age: 55 Year
  Sex: Female
  Weight: 99.880 kg

DRUGS (1)
  1. TREMFYA [Suspect]
     Active Substance: GUSELKUMAB
     Indication: Psoriasis
     Route: 065

REACTIONS (2)
  - Product dose omission issue [Unknown]
  - Product leakage [Unknown]

NARRATIVE: CASE EVENT DATE: 20220717
